FAERS Safety Report 7568897-4 (Version None)
Quarter: 2011Q2

REPORT INFORMATION
  Report Type: 
  Country: None (occurrence: None)
  Receive Date: 20110623
  Receipt Date: 20110622
  Transmission Date: 20111010
  Serious: Yes (Other)
  Sender: FDA-Public Use
  Company Number: US-PFIZER INC-2011138881

PATIENT
  Sex: Female
  Weight: 68.027 kg

DRUGS (5)
  1. PROMETRIUM [Concomitant]
     Indication: HORMONE REPLACEMENT THERAPY
     Dosage: 100 MG, DAILY
  2. LYRICA [Suspect]
     Indication: INTERVERTEBRAL DISC OPERATION
     Dosage: 7/8 DOSE
     Dates: start: 20110430
  3. ASTROGLIDE [Concomitant]
     Indication: HORMONE REPLACEMENT THERAPY
     Dosage: UNK, DAILY
  4. LYRICA [Suspect]
     Indication: NEURALGIA
     Dosage: 25 MG, DAILY
     Dates: start: 20110303
  5. LYRICA [Suspect]
     Indication: SPINAL FUSION SURGERY

REACTIONS (5)
  - DRUG WITHDRAWAL SYNDROME [None]
  - INSOMNIA [None]
  - AMNESIA [None]
  - PRURITUS [None]
  - ROAD TRAFFIC ACCIDENT [None]
